FAERS Safety Report 19452940 (Version 3)
Quarter: 2021Q3

REPORT INFORMATION
  Report Type: Report from Study
  Country: FR (occurrence: FR)
  Receive Date: 20210623
  Receipt Date: 20210902
  Transmission Date: 20211014
  Serious: Yes (Hospitalization, Other)
  Sender: FDA-Public Use
  Company Number: FR-SHIRE-FR202007859

PATIENT
  Age: 6 Year
  Sex: Male
  Weight: 13 kg

DRUGS (26)
  1. TEDUGLUTIDE [Suspect]
     Active Substance: TEDUGLUTIDE
     Indication: SHORT-BOWEL SYNDROME
     Dosage: 0.65 MILLIGRAM, QD
     Route: 065
     Dates: start: 20190521
  2. TEDUGLUTIDE [Suspect]
     Active Substance: TEDUGLUTIDE
     Dosage: 0.30 MILLIGRAM, (0.05MG/KG), QD
     Route: 065
     Dates: start: 20210130
  3. URSOFALK [Concomitant]
     Active Substance: URSODIOL
     Indication: CHOLESTASIS
     Dosage: 4.0 MILLILITER, BID
     Route: 048
     Dates: start: 20200612
  4. UVESTEROL VITAMINE A D E C [Concomitant]
     Indication: VITAMIN SUPPLEMENTATION
     Dosage: 3.0 DOSE, QD
     Route: 048
     Dates: start: 20200327
  5. TEDUGLUTIDE [Suspect]
     Active Substance: TEDUGLUTIDE
     Indication: SHORT-BOWEL SYNDROME
     Dosage: 0.65 MILLIGRAM, QD
     Route: 065
     Dates: start: 20190521
  6. TEDUGLUTIDE [Suspect]
     Active Substance: TEDUGLUTIDE
     Dosage: 0.8 MILLIGRAM, QD
     Route: 065
     Dates: start: 20200828, end: 20200828
  7. TEDUGLUTIDE [Suspect]
     Active Substance: TEDUGLUTIDE
     Dosage: 0.30 MILLIGRAM, (0.05MG/KG), QD
     Route: 065
     Dates: start: 20210130
  8. VENOFER [Concomitant]
     Active Substance: IRON SUCROSE
     Dosage: 115 MILLIGRAM, QD
     Route: 030
     Dates: start: 20201126, end: 20201126
  9. TEDUGLUTIDE [Suspect]
     Active Substance: TEDUGLUTIDE
     Indication: SHORT-BOWEL SYNDROME
     Dosage: 0.65 MILLIGRAM, QD
     Route: 065
     Dates: start: 20190521
  10. TEDUGLUTIDE [Suspect]
     Active Substance: TEDUGLUTIDE
     Dosage: 0.65 MILLIGRAM, QD
     Route: 065
     Dates: start: 20190521, end: 20200828
  11. TEDUGLUTIDE [Suspect]
     Active Substance: TEDUGLUTIDE
     Dosage: 0.65 MILLIGRAM, QD
     Route: 065
     Dates: start: 20190521, end: 20200828
  12. TEDUGLUTIDE [Suspect]
     Active Substance: TEDUGLUTIDE
     Dosage: 0.8 MILLIGRAM, QD
     Route: 065
     Dates: start: 20200828, end: 20200828
  13. TEDUGLUTIDE [Suspect]
     Active Substance: TEDUGLUTIDE
     Dosage: 0.30 MILLIGRAM, (0.05MG/KG), QD
     Route: 065
     Dates: start: 20210130
  14. TEDUGLUTIDE [Suspect]
     Active Substance: TEDUGLUTIDE
     Dosage: 0.30 MILLIGRAM, (0.05MG/KG), QD
     Route: 065
     Dates: start: 20210130
  15. TEDUGLUTIDE [Suspect]
     Active Substance: TEDUGLUTIDE
     Indication: SHORT-BOWEL SYNDROME
     Dosage: 0.65 MILLIGRAM, QD
     Route: 065
     Dates: start: 20190521
  16. TEDUGLUTIDE [Suspect]
     Active Substance: TEDUGLUTIDE
     Dosage: 0.8 MILLIGRAM, QD
     Route: 065
     Dates: start: 20200828
  17. TEDUGLUTIDE [Suspect]
     Active Substance: TEDUGLUTIDE
     Dosage: 0.8 MILLIGRAM, QD
     Route: 065
     Dates: start: 20200828
  18. TEDUGLUTIDE [Suspect]
     Active Substance: TEDUGLUTIDE
     Dosage: 0.8 MILLIGRAM, QD
     Route: 065
     Dates: start: 20200828, end: 20200828
  19. TEDUGLUTIDE [Suspect]
     Active Substance: TEDUGLUTIDE
     Dosage: 0.8 MILLIGRAM, QD
     Route: 065
     Dates: start: 20200828
  20. VENOFER [Concomitant]
     Active Substance: IRON SUCROSE
     Indication: ANAEMIA
     Dosage: 115 MILLIGRAM, QD
     Route: 042
     Dates: start: 20201126, end: 20201126
  21. VENOFER [Concomitant]
     Active Substance: IRON SUCROSE
     Dosage: 1.0 UNITS,QD
     Route: 058
     Dates: start: 20191024, end: 20191024
  22. TEDUGLUTIDE [Suspect]
     Active Substance: TEDUGLUTIDE
     Dosage: 0.65 MILLIGRAM, QD
     Route: 065
     Dates: start: 20190521, end: 20200828
  23. TEDUGLUTIDE [Suspect]
     Active Substance: TEDUGLUTIDE
     Dosage: 0.65 MILLIGRAM, QD
     Route: 065
     Dates: start: 20190521, end: 20200828
  24. TEDUGLUTIDE [Suspect]
     Active Substance: TEDUGLUTIDE
     Dosage: 0.8 MILLIGRAM, QD
     Route: 065
     Dates: start: 20200828, end: 20200828
  25. TEDUGLUTIDE [Suspect]
     Active Substance: TEDUGLUTIDE
     Dosage: 0.8 MILLIGRAM, QD
     Route: 065
     Dates: start: 20200828
  26. FLU VACCINE VII [Concomitant]
     Active Substance: INFLUENZA VIRUS VACCINE
     Indication: INFLUENZA

REACTIONS (3)
  - Apnoea [Recovered/Resolved]
  - Tonsillar hypertrophy [Recovered/Resolved]
  - Sleep apnoea syndrome [Recovered/Resolved]

NARRATIVE: CASE EVENT DATE: 20200109
